FAERS Safety Report 16734728 (Version 1)
Quarter: 2019Q3

REPORT INFORMATION
  Report Type: Spontaneous
  Country: PT (occurrence: PT)
  Receive Date: 20190823
  Receipt Date: 20190823
  Transmission Date: 20191005
  Serious: Yes (Other)
  Sender: FDA-Public Use
  Company Number: PT-MYLANLABS-2019M1077912

PATIENT
  Age: 48 Year
  Sex: Female

DRUGS (12)
  1. ETHINYLESTRADIOL/GESTODENE [Interacting]
     Active Substance: ETHINYL ESTRADIOL\GESTODENE
     Indication: CONTRACEPTION
     Dosage: 0.03 MG; GESTODENE: 0.07 MG
     Route: 048
  2. CHROMIUM PICOLINATE [Suspect]
     Active Substance: CHROMIUM PICOLINATE
     Indication: WEIGHT CONTROL
     Dosage: COMPOUNDED PREPARATION
     Route: 065
  3. CASCARA SAGRADA                    /00143201/ [Suspect]
     Active Substance: FRANGULA PURSHIANA BARK
     Indication: WEIGHT CONTROL
     Dosage: COMPOUNDED PREPARATION
     Route: 065
  4. SENNA                              /00142201/ [Suspect]
     Active Substance: SENNA LEAF
     Indication: WEIGHT CONTROL
     Dosage: COMPOUNDED PREPARATION
     Route: 065
  5. CENTELLA ASIATICA [Suspect]
     Active Substance: CENTELLA ASIATICA
     Indication: WEIGHT CONTROL
     Dosage: COMPOUNDED PREPARATION
     Route: 065
  6. ORLISTAT. [Suspect]
     Active Substance: ORLISTAT
     Indication: WEIGHT CONTROL
     Dosage: COMPOUNDED PREPARATION
     Route: 065
  7. FUROSEMIDE. [Suspect]
     Active Substance: FUROSEMIDE
     Indication: WEIGHT CONTROL
     Dosage: COMPOUNDED PREPARATION
     Route: 065
  8. METFORMIN [Suspect]
     Active Substance: METFORMIN HYDROCHLORIDE
     Indication: WEIGHT CONTROL
     Dosage: COMPOUNDED PREPARATION
     Route: 065
  9. PHENOLPHTHALEIN [Suspect]
     Active Substance: PHENOLPHTHALEIN
     Indication: WEIGHT CONTROL
     Dosage: COMPOUNDED PREPARATION
     Route: 065
  10. CHLORDIAZEPOXIDE. [Suspect]
     Active Substance: CHLORDIAZEPOXIDE
     Indication: WEIGHT CONTROL
     Dosage: COMPOUNDED PREPARATION
     Route: 065
  11. TOPIRAMATE. [Suspect]
     Active Substance: TOPIRAMATE
     Indication: WEIGHT CONTROL
     Dosage: COMPOUNDED PREPARATION
     Route: 065
  12. BUPROPION. [Suspect]
     Active Substance: BUPROPION
     Indication: WEIGHT CONTROL
     Dosage: COMPOUNDED PREPARATION
     Route: 065

REACTIONS (3)
  - Drug interaction [Unknown]
  - Cerebral venous thrombosis [Unknown]
  - Intentional product misuse [Unknown]
